FAERS Safety Report 7015033-9 (Version None)
Quarter: 2010Q3

REPORT INFORMATION
  Report Type: 
  Country: None (occurrence: None)
  Receive Date: 20100927
  Receipt Date: 20090817
  Transmission Date: 20110219
  Serious: No
  Sender: FDA-Public Use
  Company Number: US-ASTRAZENECA-2009SE08432

PATIENT
  Age: 63 Year
  Sex: Female
  Weight: 50.8 kg

DRUGS (3)
  1. ARIMIDEX [Suspect]
     Indication: BREAST CANCER STAGE II
     Route: 048
     Dates: start: 20041101
  2. SUPPLEMENTS [Concomitant]
  3. ESTRING [Concomitant]

REACTIONS (4)
  - ARTHRALGIA [None]
  - ATROPHY [None]
  - COGNITIVE DISORDER [None]
  - OSTEOPOROSIS [None]
